FAERS Safety Report 7314476-3 (Version None)
Quarter: 2011Q1

REPORT INFORMATION
  Report Type: 
  Country: None (occurrence: None)
  Receive Date: 20110225
  Receipt Date: 20100903
  Transmission Date: 20110831
  Serious: No
  Sender: FDA-Public Use
  Company Number: US-MYLANLABS-2010S1016488

PATIENT
  Age: 34 Year
  Sex: Female

DRUGS (5)
  1. ACCUTANE [Suspect]
     Dates: start: 20100503
  2. ALBUTEROL [Concomitant]
  3. AMNESTEEM [Suspect]
     Indication: ACNE
     Route: 048
     Dates: end: 20100901
  4. AMNESTEEM [Suspect]
     Route: 048
     Dates: end: 20100901
  5. ACCUTANE [Suspect]
     Indication: ACNE
     Dates: start: 20100503

REACTIONS (2)
  - MYALGIA [None]
  - HEADACHE [None]
